FAERS Safety Report 9503661 (Version 1)
Quarter: 2013Q1

REPORT INFORMATION
  Report Type: Spontaneous
  Country: US (occurrence: None)
  Receive Date: 20130107
  Receipt Date: 20130107
  Transmission Date: 20140127
  Serious: No
  Sender: FDA-Public Use
  Company Number: PHEH2012US020312

PATIENT
  Age: 46 Year
  Sex: Female
  Weight: 52.2 kg

DRUGS (1)
  1. GILENYA (FINGOLIMOD) CAPSULE, 0.5MG [Suspect]
     Indication: MULTIPLE SCLEROSIS
     Route: 048
     Dates: start: 20120801, end: 20121105

REACTIONS (16)
  - Visual acuity reduced [None]
  - Chest pain [None]
  - Urinary incontinence [None]
  - Decreased appetite [None]
  - Nausea [None]
  - Abdominal pain upper [None]
  - Constipation [None]
  - Alopecia [None]
  - Nasopharyngitis [None]
  - Cough [None]
  - Headache [None]
  - Pruritus [None]
  - Chest discomfort [None]
  - Ear pain [None]
  - Nasal discomfort [None]
  - Sinus congestion [None]
